FAERS Safety Report 11634687 (Version 3)
Quarter: 2015Q4

REPORT INFORMATION
  Report Type: Report from Study
  Country: US (occurrence: US)
  Receive Date: 20151015
  Receipt Date: 20151223
  Transmission Date: 20160304
  Serious: Yes (Hospitalization)
  Sender: FDA-Public Use
  Company Number: US-ACTELION-A-US2015-125374

PATIENT
  Age: 84 Year
  Sex: Female

DRUGS (1)
  1. MACITENTAN [Suspect]
     Active Substance: MACITENTAN
     Indication: PULMONARY HYPERTENSION
     Dosage: 10 MG, QD
     Route: 048
     Dates: start: 20141218

REACTIONS (8)
  - Renal failure [Unknown]
  - Aspiration pleural cavity [Unknown]
  - Heart rate increased [Unknown]
  - Hepatic neoplasm [Unknown]
  - Pleural effusion [Unknown]
  - Regional chemotherapy [Unknown]
  - Asthenia [Unknown]
  - Abdominal neoplasm [Unknown]
